FAERS Safety Report 5553399-7 (Version None)
Quarter: 2007Q4

REPORT INFORMATION
  Report Type: 
  Country: None (occurrence: None)
  Receive Date: 20071211
  Receipt Date: 20071126
  Transmission Date: 20080405
  Serious: Yes (Hospitalization, Disabling, Other)
  Sender: FDA-Public Use
  Company Number: 2007S1012327

PATIENT
  Sex: Female

DRUGS (1)
  1. ISOTRETINOIN [Suspect]
     Indication: ACNE
     Dosage: ORAL
     Route: 048

REACTIONS (10)
  - ALOPECIA [None]
  - ANXIETY [None]
  - BLINDNESS [None]
  - CONDITION AGGRAVATED [None]
  - DEAFNESS [None]
  - HEADACHE [None]
  - INJURY [None]
  - NERVOUS SYSTEM DISORDER [None]
  - PAIN [None]
  - QUALITY OF LIFE DECREASED [None]
